FAERS Safety Report 10459345 (Version 4)
Quarter: 2015Q1

REPORT INFORMATION
  Report Type: Spontaneous
  Country: US (occurrence: US)
  Receive Date: 20140917
  Receipt Date: 20150122
  Transmission Date: 20150720
  Serious: No
  Sender: FDA-Public Use
  Company Number: US-PFIZER INC-2014254926

PATIENT
  Age: 69 Year
  Sex: Male
  Weight: 98 kg

DRUGS (15)
  1. CLOBETASOL 0.05% [Concomitant]
     Dosage: UNK
  2. MELOXICAM. [Concomitant]
     Active Substance: MELOXICAM
     Dosage: 15 MG, UNK
  3. VIAGRA [Suspect]
     Active Substance: SILDENAFIL CITRATE
     Dosage: 100 MG, AS NEEDED
     Dates: start: 20140707, end: 201411
  4. VIAGRA [Suspect]
     Active Substance: SILDENAFIL CITRATE
     Indication: ERECTILE DYSFUNCTION
     Dosage: 100 MG, AS NEEDED
     Route: 048
     Dates: start: 201404
  5. LOSARTAN [Concomitant]
     Active Substance: LOSARTAN
     Indication: HYPERTENSION
     Dosage: 12.5 MG, 1X/DAY
     Route: 048
  6. GLUCOSAMINE HCL [Concomitant]
     Active Substance: GLUCOSAMINE
     Dosage: 3000 MG, UNK
  7. METRONIDAZOLE. [Concomitant]
     Active Substance: METRONIDAZOLE
     Dosage: 1 %, UNK
  8. MIRVASO [Concomitant]
     Active Substance: BRIMONIDINE TARTRATE
     Dosage: 0.33 %, UNK
  9. CIALIS [Concomitant]
     Active Substance: TADALAFIL
     Dosage: 20 MG, UNK
  10. CLOBETASOL 0.05% [Concomitant]
     Dosage: UNK
  11. FISH OIL [Concomitant]
     Active Substance: FISH OIL
     Dosage: 1000 MG, UNK
  12. DOXYCYCLINE HYCLATE. [Concomitant]
     Active Substance: DOXYCYCLINE HYCLATE
     Dosage: 100 MG, UNK
  13. CALCIUM CARBONATE. [Concomitant]
     Active Substance: CALCIUM CARBONATE
     Dosage: 1200 MG, UNK
  14. VITAMIN D [Concomitant]
     Active Substance: CHOLECALCIFEROL
     Dosage: 2000 IU, UNK
  15. HYDROCHLOROTHIAZIDE W/LOSARTAN [Concomitant]
     Active Substance: HYDROCHLOROTHIAZIDE\LOSARTAN
     Dosage: UNK (HYDROCHLOROTHIAZIDE- 12.5 MG, LOSARTAN 50 MG)

REACTIONS (3)
  - Medication error [Not Recovered/Not Resolved]
  - Drug ineffective [Not Recovered/Not Resolved]
  - Drug effect incomplete [Not Recovered/Not Resolved]

NARRATIVE: CASE EVENT DATE: 2014
